FAERS Safety Report 8389984-7 (Version None)
Quarter: 2012Q2

REPORT INFORMATION
  Report Type: 
  Country: None (occurrence: None)
  Receive Date: 20120529
  Receipt Date: 20120522
  Transmission Date: 20120825
  Serious: No
  Sender: FDA-Public Use
  Company Number: US-PFIZER INC-2012056878

PATIENT
  Sex: Female

DRUGS (2)
  1. NORVASC [Suspect]
     Indication: HYPERTENSION
     Dosage: 10 MG, DAILY
     Route: 048
     Dates: start: 20040827
  2. AMLODIPINE BESYLATE [Suspect]
     Indication: HYPERTENSION
     Dosage: UNK

REACTIONS (5)
  - CHEST PAIN [None]
  - GASTROENTERITIS VIRAL [None]
  - HYPERTENSION [None]
  - DRUG INEFFECTIVE [None]
  - ABDOMINAL PAIN [None]
